FAERS Safety Report 4646815-6 (Version None)
Quarter: 2005Q2

REPORT INFORMATION
  Report Type: 
  Country: None (occurrence: None)
  Receive Date: 20050331
  Receipt Date: 20041209
  Transmission Date: 20051028
  Serious: No
  Sender: FDA-Public Use
  Company Number: 04P-131-0283148-00

PATIENT
  Age: 49 Year
  Sex: Female
  Weight: 77.1115 kg

DRUGS (5)
  1. HUMIRA [Suspect]
     Dosage: 20 MG, 2 IN 1 M
  2. METHOTREXATE [Concomitant]
  3. HYDROXYCHLOROQUINE PHOSPHATE [Concomitant]
  4. CELECOXIB [Concomitant]
  5. PREDNISONE TAB [Concomitant]

REACTIONS (2)
  - ERYTHEMA [None]
  - RASH [None]
